FAERS Safety Report 5038359-7 (Version None)
Quarter: 2006Q2

REPORT INFORMATION
  Report Type: 
  Country: None (occurrence: None)
  Receive Date: 20060601
  Receipt Date: 20060125
  Transmission Date: 20061013
  Serious: No
  Sender: FDA-Public Use
  Company Number: 2006PV007664

PATIENT
  Age: 51 Year
  Sex: Female
  Weight: 131.5431 kg

DRUGS (7)
  1. BYETTA [Suspect]
     Indication: DIABETES MELLITUS NON-INSULIN-DEPENDENT
     Dosage: 5 MCG; BID; SC
     Route: 058
     Dates: start: 20060119
  2. ACTOS+MET [Concomitant]
  3. VERALAN/PM [Concomitant]
  4. ALLEGRA [Concomitant]
  5. AMARYL [Concomitant]
  6. ACTOS [Concomitant]
  7. METFORMIN [Concomitant]

REACTIONS (5)
  - BLOOD GLUCOSE INCREASED [None]
  - RASH [None]
  - RESPIRATORY TRACT IRRITATION [None]
  - THERAPEUTIC RESPONSE UNEXPECTED [None]
  - WEIGHT DECREASED [None]
